FAERS Safety Report 24352062 (Version 1)
Quarter: 2024Q3

REPORT INFORMATION
  Report Type: Report from Study
  Country: EG (occurrence: EG)
  Receive Date: 20240923
  Receipt Date: 20240923
  Transmission Date: 20241016
  Serious: No
  Sender: ROCHE
  Company Number: EG-ROCHE-3151666

PATIENT
  Age: 62 Year
  Sex: Female

DRUGS (14)
  1. HERCEPTIN [Suspect]
     Active Substance: TRASTUZUMAB
     Indication: Breast cancer metastatic
     Dosage: NUMBER OF CYCLES PER REGIMEN:6
     Route: 041
     Dates: start: 20181114, end: 20190227
  2. HERCEPTIN [Suspect]
     Active Substance: TRASTUZUMAB
     Dosage: 6MG/KG
     Route: 042
     Dates: start: 20220115
  3. GEMZAR [Suspect]
     Active Substance: GEMCITABINE HYDROCHLORIDE
     Indication: Breast cancer metastatic
     Dosage: FREQUENCY: OTHER, D1,D8/3WEEKS
     Route: 042
     Dates: start: 20220115
  4. TAXOTERE [Suspect]
     Active Substance: DOCETAXEL
     Indication: Breast cancer metastatic
     Route: 042
     Dates: start: 20181114, end: 20190227
  5. CISPLATIN [Suspect]
     Active Substance: CISPLATIN
     Indication: Breast cancer metastatic
     Dosage: FREQUENCY: D1-3/3WEEKS
     Route: 042
     Dates: start: 20220115
  6. PARAPLATIN [Suspect]
     Active Substance: CARBOPLATIN
     Indication: Breast cancer metastatic
     Route: 042
     Dates: start: 20181114, end: 20190227
  7. FEMARA [Suspect]
     Active Substance: LETROZOLE
     Indication: Breast cancer metastatic
     Route: 048
     Dates: start: 20190603, end: 20220115
  8. PIPERACILLIN AND TAZOBACTAM [Concomitant]
     Active Substance: PIPERACILLIN SODIUM\TAZOBACTAM SODIUM
     Indication: Febrile neutropenia
     Route: 042
     Dates: start: 20190102, end: 20190107
  9. FERROUS GLUCONATE [Concomitant]
     Active Substance: FERROUS GLUCONATE
     Indication: Anaemia
     Route: 048
     Dates: start: 20190206, end: 20190703
  10. MAGIC WASH (UNK INGREDIENTS) [Concomitant]
     Indication: Mucosal inflammation
     Dosage: 1 SPRAY
     Route: 048
     Dates: start: 20181205, end: 20181226
  11. SUPPORTAN [Concomitant]
     Indication: Decreased appetite
     Dosage: 1 BOTTTLE
     Route: 048
     Dates: start: 20190206, end: 20190703
  12. ALANYL GLUTAMINE [Concomitant]
     Active Substance: ALANYL GLUTAMINE
     Indication: Decreased appetite
     Dosage: 1 BOTTLE
     Route: 042
     Dates: start: 20190206, end: 20190210
  13. EPREX [Concomitant]
     Active Substance: ERYTHROPOIETIN
     Indication: Anaemia
     Dosage: 1 WEEK FOR 4 WEEKS
     Route: 058
     Dates: start: 20220228, end: 20220328
  14. ACETAMINOPHEN [Concomitant]
     Active Substance: ACETAMINOPHEN
     Indication: Arthralgia
     Route: 048
     Dates: start: 20220416

REACTIONS (1)
  - Abdominal pain upper [Recovered/Resolved]

NARRATIVE: CASE EVENT DATE: 20220516
